FAERS Safety Report 7930536-8 (Version None)
Quarter: 2011Q4

REPORT INFORMATION
  Report Type: 
  Country: None (occurrence: None)
  Receive Date: 20111117
  Receipt Date: 20111103
  Transmission Date: 20120403
  Serious: Yes (Other)
  Sender: FDA-Public Use
  Company Number: 1103801

PATIENT
  Age: 22 Year
  Sex: Female

DRUGS (16)
  1. CYCLOPHOSPHAMIDE [Suspect]
     Indication: T-CELL LYMPHOMA
     Dosage: 300 MG/M^2, INTRAVENOUS
  2. DOXORUBICIN HCL [Suspect]
     Indication: T-CELL LYMPHOMA
     Dosage: 50 MG/M^2
  3. LEUCOVORIN CALCIUM [Concomitant]
  4. SULFAMETHOXAZOLE AND TRIMETHOPRIM [Concomitant]
  5. ALEMTUZUMAB [Suspect]
     Indication: T-CELL LYMPHOMA
     Dosage: 30 MG, SUBCUTANEOUS
     Route: 058
  6. CYTARABINE [Suspect]
     Indication: T-CELL LYMPHOMA
     Dosage: 100 MG, INTRATHECAL
     Route: 037
  7. MESNA [Concomitant]
  8. ACETAMINOPHEN [Concomitant]
  9. FLUCONAZOLE [Concomitant]
  10. FILGRASTIM [Concomitant]
  11. DIPHENHYDRAMINE HCL [Concomitant]
  12. VINCRISTINE SULFATE [Suspect]
     Indication: T-CELL LYMPHOMA
     Dosage: 1.4 MG/M2, INTRAVENOUS BOLUS
     Route: 040
  13. METHOTREXATE [Suspect]
     Indication: T-CELL LYMPHOMA
     Dosage: 12;200;800 MG, INTRATHECAL
     Route: 037
  14. DEXAMETHASONE [Suspect]
     Indication: T-CELL LYMPHOMA
     Dosage: 12 MG, INTRATHECAL
     Route: 037
  15. ACYCLOVIR [Concomitant]
  16. GANCICLOVIR [Concomitant]

REACTIONS (2)
  - CYTOMEGALOVIRUS INFECTION [None]
  - NEUTROPENIA [None]
